FAERS Safety Report 12949003 (Version 1)
Quarter: 2016Q4

REPORT INFORMATION
  Report Type: Spontaneous
  Country: GB (occurrence: GB)
  Receive Date: 20161117
  Receipt Date: 20161117
  Transmission Date: 20170207
  Serious: Yes (Other)
  Sender: FDA-Public Use
  Company Number: GB-TEVA-712266ACC

PATIENT
  Age: 79 Year
  Sex: Male
  Weight: 73.02 kg

DRUGS (10)
  1. ASPIRIN. [Concomitant]
     Active Substance: ASPIRIN
  2. FERROUS FUMARATE [Concomitant]
     Active Substance: FERROUS FUMARATE
  3. RAMIPRIL. [Concomitant]
     Active Substance: RAMIPRIL
  4. BISOPROLOL FUMARATE. [Suspect]
     Active Substance: BISOPROLOL FUMARATE
     Indication: CARDIAC FAILURE CHRONIC
     Dosage: 1.25 MILLIGRAM DAILY;
     Route: 048
     Dates: start: 20160921, end: 20161024
  5. CITALOPRAM [Concomitant]
     Active Substance: CITALOPRAM HYDROBROMIDE
  6. AMLODIPINE [Concomitant]
     Active Substance: AMLODIPINE BESYLATE
  7. LANTUS [Concomitant]
     Active Substance: INSULIN GLARGINE
  8. OMEPRAZOLE. [Concomitant]
     Active Substance: OMEPRAZOLE
  9. SIMVASTATIN. [Concomitant]
     Active Substance: SIMVASTATIN
  10. METFORMIN [Concomitant]
     Active Substance: METFORMIN HYDROCHLORIDE

REACTIONS (10)
  - Muscle spasms [Recovered/Resolved]
  - Feeling cold [Unknown]
  - Nausea [Recovered/Resolved]
  - Chills [Unknown]
  - Vomiting [Recovered/Resolved]
  - Somnolence [Recovered/Resolved]
  - Blood glucose abnormal [Recovered/Resolved]
  - Abdominal discomfort [Unknown]
  - Peripheral coldness [Recovered/Resolved]
  - Malaise [Recovered/Resolved]

NARRATIVE: CASE EVENT DATE: 20161013
